FAERS Safety Report 23841847 (Version 2)
Quarter: 2025Q2

REPORT INFORMATION
  Report Type: Spontaneous
  Country: US (occurrence: US)
  Receive Date: 20240510
  Receipt Date: 20250608
  Transmission Date: 20250716
  Serious: Yes (Hospitalization)
  Sender: COHERUS
  Company Number: US-COHERUS BIOSCIENCES, Inc.-2024-COH-US000287

PATIENT

DRUGS (1)
  1. UDENYCA [Suspect]
     Active Substance: PEGFILGRASTIM-CBQV
     Indication: Prophylaxis
     Dates: start: 20240410, end: 202404

REACTIONS (6)
  - Loss of consciousness [Recovered/Resolved]
  - Back pain [Recovered/Resolved]
  - Abdominal pain [Recovered/Resolved]
  - Spinal pain [Recovered/Resolved]
  - Lethargy [Recovered/Resolved]
  - Amnesia [Recovered/Resolved]

NARRATIVE: CASE EVENT DATE: 20240410
